FAERS Safety Report 5001121-5 (Version None)
Quarter: 2006Q2

REPORT INFORMATION
  Report Type: 
  Country: None (occurrence: None)
  Receive Date: 20060512
  Receipt Date: 20060404
  Transmission Date: 20061013
  Serious: Yes (Other)
  Sender: FDA-Public Use
  Company Number: 2006GB00565

PATIENT
  Age: 22505 Day
  Sex: Male

DRUGS (2)
  1. ZOLADEX [Suspect]
     Indication: PROSTATE CANCER
     Route: 058
     Dates: start: 20060104
  2. CASODEX [Concomitant]
     Indication: PROSTATE CANCER
     Route: 048
     Dates: start: 20051221

REACTIONS (5)
  - EXOSTOSIS [None]
  - GAIT DISTURBANCE [None]
  - INTERVERTEBRAL DISC SPACE NARROWING [None]
  - MYALGIA [None]
  - SPINAL OSTEOARTHRITIS [None]
